FAERS Safety Report 6959956-5 (Version None)
Quarter: 2010Q3

REPORT INFORMATION
  Report Type: 
  Country: None (occurrence: None)
  Receive Date: 20100901
  Receipt Date: 20100820
  Transmission Date: 20110219
  Serious: Yes (Other)
  Sender: FDA-Public Use
  Company Number: PHHY2010US55760

PATIENT
  Age: 57 Year
  Sex: Female
  Weight: 66.667 kg

DRUGS (1)
  1. RECLAST [Suspect]
     Indication: OSTEOPOROSIS
     Dosage: 5 ML
     Route: 042
     Dates: start: 20100707

REACTIONS (4)
  - BLOOD PRESSURE DECREASED [None]
  - CLONIC CONVULSION [None]
  - HEART RATE DECREASED [None]
  - LOSS OF CONSCIOUSNESS [None]
